FAERS Safety Report 23053369 (Version 4)
Quarter: 2023Q4

REPORT INFORMATION
  Report Type: Report from Study
  Country: CZ (occurrence: CZ)
  Receive Date: 20231011
  Receipt Date: 20231228
  Transmission Date: 20240110
  Serious: Yes (Hospitalization, Other)
  Sender: FDA-Public Use
  Company Number: CZ-CELLTRION INC.-2023CZ019584

PATIENT

DRUGS (23)
  1. RITUXIMAB [Suspect]
     Active Substance: RITUXIMAB
     Indication: Diffuse large B-cell lymphoma
     Dosage: 633.75 MG, EVERY 3 WEEKS
     Route: 042
     Dates: start: 20230704, end: 20230905
  2. RITUXIMAB [Suspect]
     Active Substance: RITUXIMAB
     Dosage: 633.75 MG, EVERY 3 WEEKS
     Route: 042
     Dates: start: 20231006
  3. PREDNISONE [Suspect]
     Active Substance: PREDNISONE
     Indication: Diffuse large B-cell lymphoma
     Dosage: 100 MG DAYS 1-5 OF EACH CYCLE, EVERY 1 DAYS
     Route: 048
     Dates: start: 20230704, end: 20230909
  4. PREDNISONE [Suspect]
     Active Substance: PREDNISONE
     Dosage: 100 MG DAYS 1-5 OF EACH CYCLE, EVERY 1 DAYS
     Route: 048
     Dates: start: 20231006
  5. DOXORUBICIN [Suspect]
     Active Substance: DOXORUBICIN
     Indication: Diffuse large B-cell lymphoma
     Dosage: 84.5 MG, EVERY 3 WEEKS
     Route: 042
     Dates: start: 20230704, end: 20230905
  6. DOXORUBICIN [Suspect]
     Active Substance: DOXORUBICIN
     Dosage: 84.5 MG, EVERY 3 WEEKS
     Route: 042
     Dates: start: 20231006
  7. VINCRISTINE [Suspect]
     Active Substance: VINCRISTINE
     Indication: Diffuse large B-cell lymphoma
     Dosage: 2 MG, EVERY 3 WEEKS
     Route: 042
     Dates: start: 20230704, end: 20230905
  8. VINCRISTINE [Suspect]
     Active Substance: VINCRISTINE
     Dosage: 2 MG, EVERY 3 WEEKS
     Route: 042
     Dates: start: 20231006
  9. EPCORITAMAB [Suspect]
     Active Substance: EPCORITAMAB
     Indication: Diffuse large B-cell lymphoma
     Dosage: 48 MG C1 (STEP-UP), CYCLES 2 - 4 (21-DAY CYCLE, WEEKLY DOSE), C5 - 8 (21-DAY CYCLE, EVERY 3 WEEKS) P
     Route: 058
     Dates: start: 20230704, end: 20230905
  10. EPCORITAMAB [Suspect]
     Active Substance: EPCORITAMAB
     Dosage: 48 MG C1 (STEP-UP), CYCLES 2 - 4 (21-DAY CYCLE, WEEKLY DOSE), C5 - 8 (21-DAY CYCLE, EVERY 3 WEEKS) P
     Route: 058
     Dates: start: 20231006
  11. CYCLOPHOSPHAMIDE [Suspect]
     Active Substance: CYCLOPHOSPHAMIDE
     Indication: Diffuse large B-cell lymphoma
     Dosage: 1267.5 MG, EVERY 3 WEEKS
     Route: 042
     Dates: start: 20230704, end: 20230905
  12. CYCLOPHOSPHAMIDE [Suspect]
     Active Substance: CYCLOPHOSPHAMIDE
     Dosage: 1267.5 MG, EVERY 3 WEEKS
     Route: 042
     Dates: start: 20231006
  13. BISEPTOL [Concomitant]
     Active Substance: SULFAMETHOXAZOLE\TRIMETHOPRIM
     Indication: Antifungal prophylaxis
     Dosage: 400 MG EVERY EVENING, EVERY 1 DAYS
     Route: 065
     Dates: start: 20230704
  14. FENOFIBRATE [Concomitant]
     Active Substance: FENOFIBRATE
     Indication: Hyperlipidaemia
     Dosage: 215 MG, EVERY 1 DAYS (FROM 2012)
     Route: 065
     Dates: start: 20230911
  15. FENOFIBRATE [Concomitant]
     Active Substance: FENOFIBRATE
     Indication: Dyslipidaemia
  16. ASPIRIN\GLYCINE [Concomitant]
     Active Substance: ASPIRIN\GLYCINE
     Indication: Thrombosis prophylaxis
     Dosage: 100 MG EVERY 1 DAYS
     Route: 065
     Dates: start: 20120714
  17. EUTHYROX [Concomitant]
     Active Substance: LEVOTHYROXINE SODIUM
     Indication: Hypothyroidism
     Dosage: 25 UG, ONCE (FROM 2012)
     Route: 065
     Dates: start: 2021
  18. ROSUVASTATIN CALCIUM [Concomitant]
     Active Substance: ROSUVASTATIN CALCIUM
     Indication: Hyperlipidaemia
     Dosage: 20 MG, EVERY 1 DAYS (FROM 2012)
     Route: 065
     Dates: start: 20230911
  19. ALLOPURINOL [Concomitant]
     Active Substance: ALLOPURINOL
     Indication: Hyperuricaemia
     Dosage: 300 MG, EVERY 1 DAYS (FROM 2012)
     Route: 065
     Dates: start: 20230911
  20. VALACYCLOVIR HYDROCHLORIDE [Concomitant]
     Active Substance: VALACYCLOVIR HYDROCHLORIDE
     Indication: Herpes simplex reactivation
     Dosage: 500 MG, TWICE
     Route: 065
     Dates: start: 20230829
  21. ACETAMINOPHEN [Concomitant]
     Active Substance: ACETAMINOPHEN
     Indication: Eye pain
     Dosage: 500 MG, AS NECESSARY (FROM 2023)
     Route: 065
  22. CIPROFLOXACIN [Concomitant]
     Active Substance: CIPROFLOXACIN
     Indication: Infection prophylaxis
     Dosage: 500 MG, 2/DAYS
     Route: 065
     Dates: start: 20230906, end: 20230910
  23. ZOLPIDEM [Concomitant]
     Active Substance: ZOLPIDEM TARTRATE
     Indication: Insomnia
     Dosage: 10 MG, AS NECESSARY, (START DATE:2023)
     Route: 065

REACTIONS (4)
  - Embolism [Recovered/Resolved with Sequelae]
  - Hypokalaemia [Recovered/Resolved]
  - Pneumonia [Recovered/Resolved]
  - Neutropenia [Recovered/Resolved]

NARRATIVE: CASE EVENT DATE: 20230912
